FAERS Safety Report 9922738 (Version 2)
Quarter: 2014Q1

REPORT INFORMATION
  Report Type: Spontaneous
  Country: US (occurrence: US)
  Receive Date: 20140225
  Receipt Date: 20140304
  Transmission Date: 20141002
  Serious: No
  Sender: FDA-Public Use
  Company Number: US-009507513-1402USA011819

PATIENT
  Age: 65 Year
  Sex: Female
  Weight: 68.27 kg

DRUGS (4)
  1. OXYTROL FOR WOMEN [Suspect]
     Indication: STRESS URINARY INCONTINENCE
     Dosage: UNK, Q4D
     Route: 062
     Dates: start: 201311
  2. NEURONTIN [Concomitant]
     Indication: RESTLESS LEGS SYNDROME
     Dosage: UNK, UNKNOWN
  3. KLONOPIN [Concomitant]
     Indication: BIPOLAR DISORDER
     Dosage: UNK, UNKNOWN
  4. BUSPAR [Concomitant]
     Indication: BIPOLAR DISORDER
     Dosage: UNK, UNKNOWN

REACTIONS (2)
  - Discomfort [Unknown]
  - Product adhesion issue [Unknown]
